FAERS Safety Report 17133481 (Version 1)
Quarter: 2019Q4

REPORT INFORMATION
  Report Type: Spontaneous
  Country: US (occurrence: US)
  Receive Date: 20191210
  Receipt Date: 20191210
  Transmission Date: 20200122
  Serious: No
  Sender: FDA-Public Use
  Company Number: US-UCBSA-2016034726

PATIENT
  Age: 68 Year
  Sex: Female
  Weight: 45.35 kg

DRUGS (6)
  1. MERCAPTOPURINE. [Concomitant]
     Active Substance: MERCAPTOPURINE
     Indication: CROHN^S DISEASE
     Dosage: 50 MG, ONCE DAILY (QD)
     Route: 048
     Dates: start: 201611
  2. DIAZEPAM. [Concomitant]
     Active Substance: DIAZEPAM
     Indication: PRODUCT USED FOR UNKNOWN INDICATION
  3. PREMARIN [Concomitant]
     Active Substance: ESTROGENS, CONJUGATED
     Indication: PRODUCT USED FOR UNKNOWN INDICATION
  4. CIMZIA [Suspect]
     Active Substance: CERTOLIZUMAB PEGOL
     Indication: CROHN^S DISEASE
     Dosage: 400 MG, MONTHLY (QM)
     Route: 030
     Dates: start: 2014, end: 201611
  5. DULOXETINE. [Concomitant]
     Active Substance: DULOXETINE
     Indication: PRODUCT USED FOR UNKNOWN INDICATION
  6. LINACLOTIDE [Concomitant]
     Active Substance: LINACLOTIDE
     Indication: PRODUCT USED FOR UNKNOWN INDICATION

REACTIONS (1)
  - Rash [Recovered/Resolved]

NARRATIVE: CASE EVENT DATE: 201610
